FAERS Safety Report 7121001-9 (Version None)
Quarter: 2010Q4

REPORT INFORMATION
  Report Type: 
  Country: None (occurrence: None)
  Receive Date: 20101124
  Receipt Date: 20100428
  Transmission Date: 20110411
  Serious: Yes (Other)
  Sender: FDA-Public Use
  Company Number: US-PFIZER INC-2010037377

PATIENT
  Sex: Male
  Weight: 78.005 kg

DRUGS (27)
  1. TIKOSYN [Suspect]
     Indication: ATRIAL FIBRILLATION
     Dosage: 500 UG, 2X/DAY
     Route: 048
     Dates: start: 20100211
  2. IBUPROFEN [Concomitant]
     Dosage: 800 MG, UNK
  3. METOPROLOL [Concomitant]
     Dosage: 50 MG, 2X/DAY
  4. LEVOTHYROXINE [Concomitant]
     Dosage: 50 UG, UNK
  5. PROTONIX [Concomitant]
     Dosage: 40 MG, UNK
  6. PEPCID [Concomitant]
     Dosage: 40 MG, UNK
  7. FLOMAX [Concomitant]
     Dosage: 0.4 MG, UNK
  8. LEVOCARNITINE [Concomitant]
     Dosage: 333 MG, 3X/DAY
  9. DOXYCYCLINE [Concomitant]
     Dosage: 100 MG, 2X/DAY
  10. WARFARIN [Concomitant]
     Dosage: 5 MG, DAILY
  11. NYSTATIN [Concomitant]
     Dosage: 1000 MG, DAILY
  12. ACETYLSALICYLIC ACID [Concomitant]
     Dosage: 325 MG, UNK
  13. LASIX [Concomitant]
     Dosage: 20 MG, DAILY
  14. INSPRA [Concomitant]
     Dosage: 50 MG, 2X/DAY
  15. PLAVIX [Concomitant]
     Dosage: 75 MG, DAILY
  16. QUINAPRIL [Concomitant]
     Dosage: 5 MG, DAILY
  17. CRESTOR [Concomitant]
     Dosage: 5 MG, DAILY
  18. POTASSIUM [Concomitant]
     Dosage: UNK, 2X/DAY
  19. CALCIUM WITH VITAMIN D [Concomitant]
  20. FISH OIL [Concomitant]
  21. ASCORBIC ACID [Concomitant]
  22. MAGNESIUM [Concomitant]
  23. SELENIUM [Concomitant]
  24. COENZYME Q10 [Concomitant]
  25. MILK THISTLE [Concomitant]
  26. VITAMIN D [Concomitant]
  27. SAW PALMETTO [Concomitant]

REACTIONS (2)
  - ATRIAL FIBRILLATION [None]
  - ELECTROCARDIOGRAM QT PROLONGED [None]
